FAERS Safety Report 12451993 (Version 2)
Quarter: 2016Q3

REPORT INFORMATION
  Report Type: Spontaneous
  Country: US (occurrence: US)
  Receive Date: 20160609
  Receipt Date: 20160801
  Transmission Date: 20161109
  Serious: No
  Sender: FDA-Public Use
  Company Number: US-009507513-1605USA013442

PATIENT
  Sex: Female

DRUGS (1)
  1. NUVARING [Suspect]
     Active Substance: ETHINYL ESTRADIOL\ETONOGESTREL
     Indication: CONTRACEPTION
     Dosage: STRENGTH AND DOSE REPORTED AS:0.15/0.12 MG
     Route: 067

REACTIONS (3)
  - No adverse event [Unknown]
  - Device expulsion [Unknown]
  - Product quality issue [Unknown]
